FAERS Safety Report 5840463-8 (Version None)
Quarter: 2008Q3

REPORT INFORMATION
  Report Type: 
  Country: None (occurrence: None)
  Receive Date: 20080807
  Receipt Date: 20080807
  Transmission Date: 20090109
  Serious: No
  Sender: FDA-Public Use
  Company Number: None

PATIENT
  Age: 45 Year
  Sex: Female
  Weight: 74.8435 kg

DRUGS (3)
  1. COPAXONE [Suspect]
     Indication: MULTIPLE SCLEROSIS
     Dosage: INJECT 20 MG ONCE DAILY SQ
     Route: 058
     Dates: start: 20080302, end: 20080729
  2. TIZANADINE [Concomitant]
  3. NEURONTIN [Concomitant]

REACTIONS (10)
  - CHEST DISCOMFORT [None]
  - DYSPNOEA [None]
  - EAR DISCOMFORT [None]
  - FEELING ABNORMAL [None]
  - FEELING HOT [None]
  - HEART RATE INCREASED [None]
  - HYPOACUSIS [None]
  - IMMEDIATE POST-INJECTION REACTION [None]
  - MUSCLE SPASMS [None]
  - PYREXIA [None]
